FAERS Safety Report 17517604 (Version 1)
Quarter: 2020Q1

REPORT INFORMATION
  Report Type: Spontaneous
  Country: US (occurrence: US)
  Receive Date: 20200309
  Receipt Date: 20200309
  Transmission Date: 20200409
  Serious: Yes (Disabling)
  Sender: FDA-Public Use
  Company Number: None

PATIENT
  Age: 51 Year
  Sex: Female
  Weight: 67.5 kg

DRUGS (4)
  1. AIMOVIG [Suspect]
     Active Substance: ERENUMAB-AOOE
     Indication: MIGRAINE
     Dosage: ?          QUANTITY:1 INJECTION(S);OTHER FREQUENCY:28 DAYS;OTHER ROUTE:INJECT INTO ABDOMEN?
  2. VITAMIN D [Concomitant]
     Active Substance: VITAMIN D NOS
  3. ZOLMITRIPTAN. [Concomitant]
     Active Substance: ZOLMITRIPTAN
  4. MULTIVITAMIN FOR WOMEN [Concomitant]
     Active Substance: MINERALS\VITAMINS

REACTIONS (15)
  - Paraesthesia [None]
  - Feeling abnormal [None]
  - Dysphagia [None]
  - Dizziness [None]
  - Arthralgia [None]
  - Memory impairment [None]
  - Muscle spasms [None]
  - Vision blurred [None]
  - Anti-thyroid antibody [None]
  - Restless legs syndrome [None]
  - Hypoaesthesia [None]
  - Alopecia [None]
  - Vertigo [None]
  - Hypertension [None]
  - Weight increased [None]

NARRATIVE: CASE EVENT DATE: 20181201
